FAERS Safety Report 8352530-8 (Version None)
Quarter: 2012Q2

REPORT INFORMATION
  Report Type: 
  Country: None (occurrence: None)
  Receive Date: 20120511
  Receipt Date: 20120509
  Transmission Date: 20120825
  Serious: Yes (Death, Other)
  Sender: FDA-Public Use
  Company Number: PHHY2012FR034636

PATIENT
  Sex: Female
  Weight: 78 kg

DRUGS (12)
  1. PRAZEPAM [Concomitant]
     Indication: ANXIETY
  2. LYRICA [Concomitant]
     Indication: DEPRESSION
     Dosage: 50 MG, DAILY
     Dates: start: 20111115
  3. LYRICA [Concomitant]
     Indication: PAIN
  4. HYDROCORTISONE [Concomitant]
     Indication: HYPOPITUITARISM
     Dosage: 30 MG, DAILY
     Dates: start: 19900101
  5. NEBIVOLOL HCL [Concomitant]
     Indication: HYPERTENSION
     Dosage: 1 DF, QD
     Dates: start: 19900101
  6. FUROSEMIDE [Concomitant]
     Indication: HYPERTENSION
     Dosage: 1 DF, QD
     Dates: start: 19900101
  7. ZOLEDRONOC ACID [Suspect]
     Indication: OSTEOPOROTIC FRACTURE
     Dosage: 5 MG, UNK
     Route: 042
     Dates: start: 20120102
  8. AMITRIPTYLINE HCL [Concomitant]
     Indication: DEPRESSION
     Dosage: 1 DF, QD
     Dates: start: 19900101
  9. LYRICA [Concomitant]
     Indication: ANXIETY
  10. LEVOTHYROXINE SODIUM [Concomitant]
     Indication: HYPOPITUITARISM
     Dosage: 150 UG, DAILY
     Dates: start: 19900101
  11. AMITRIPTYLINE HCL [Concomitant]
     Indication: ANXIETY
  12. PRAZEPAM [Concomitant]
     Indication: DEPRESSION
     Dosage: 1 DF, QD
     Dates: start: 19900101

REACTIONS (5)
  - ASPIRATION TRACHEAL [None]
  - ABDOMINAL PAIN [None]
  - VOMITING [None]
  - DYSPHAGIA [None]
  - INCORRECT DOSE ADMINISTERED [None]
